FAERS Safety Report 5787495-6 (Version None)
Quarter: 2008Q2

REPORT INFORMATION
  Report Type: 
  Country: None (occurrence: None)
  Receive Date: 20080625
  Receipt Date: 20071004
  Transmission Date: 20081010
  Serious: No
  Sender: FDA-Public Use
  Company Number: US-ASTRAZENECA-2007UW23200

PATIENT
  Age: 85 Year
  Sex: Female
  Weight: 60.3 kg

DRUGS (4)
  1. PULMICORT RESPULES [Suspect]
     Indication: COUGH
     Route: 055
     Dates: start: 20040101
  2. PULMICORT RESPULES [Suspect]
     Indication: DYSPNOEA
     Route: 055
     Dates: start: 20040101
  3. ACETYLCYSTEINE [Concomitant]
  4. ALBUTEROL SULFATE VIA NEBULIZER [Concomitant]

REACTIONS (3)
  - LOOSE TOOTH [None]
  - PRURITUS [None]
  - WEIGHT DECREASED [None]
